FAERS Safety Report 10444144 (Version 3)
Quarter: 2014Q4

REPORT INFORMATION
  Report Type: Spontaneous
  Country: JP (occurrence: JP)
  Receive Date: 20140910
  Receipt Date: 20141104
  Transmission Date: 20150528
  Serious: Yes (Other)
  Sender: FDA-Public Use
  Company Number: JP-ROCHE-1459901

PATIENT
  Age: 50 Year
  Sex: Female

DRUGS (2)
  1. ANEXATE [Suspect]
     Active Substance: FLUMAZENIL
     Indication: REVERSAL OF SEDATION
     Route: 042
     Dates: start: 20140902, end: 20140902
  2. DORMICUM (INJ) [Concomitant]
     Active Substance: MIDAZOLAM HYDROCHLORIDE
     Route: 065

REACTIONS (2)
  - Bradycardia [Recovered/Resolved]
  - Hypotension [Recovered/Resolved]

NARRATIVE: CASE EVENT DATE: 20140902
